FAERS Safety Report 4425393-0 (Version None)
Quarter: 2004Q3

REPORT INFORMATION
  Report Type: 
  Country: None (occurrence: None)
  Receive Date: 20040813
  Receipt Date: 20040517
  Transmission Date: 20050211
  Serious: Yes (Hospitalization, Disabling)
  Sender: FDA-Public Use
  Company Number: BE-GLAXOSMITHKLINE-B0334699A

PATIENT
  Age: 63 Year
  Sex: Female
  Weight: 60 kg

DRUGS (3)
  1. CEFUROXIME AXETIL [Suspect]
     Indication: LOBAR PNEUMONIA
     Dosage: 500MG TWICE PER DAY
     Route: 048
     Dates: start: 20040223, end: 20040302
  2. EUTHYROX [Concomitant]
     Dosage: 100MCG PER DAY
  3. TEMESTA [Concomitant]
     Dosage: 1MG AS REQUIRED

REACTIONS (10)
  - DRUG INEFFECTIVE [None]
  - HEADACHE [None]
  - HYPERTENSION [None]
  - MALAISE [None]
  - NAUSEA [None]
  - NYSTAGMUS [None]
  - SINUSITIS [None]
  - VERTIGO [None]
  - VESTIBULAR NEURONITIS [None]
  - VOMITING [None]
